FAERS Safety Report 17535071 (Version 1)
Quarter: 2020Q1

REPORT INFORMATION
  Report Type: Other
  Country: SE (occurrence: SE)
  Receive Date: 20200313
  Receipt Date: 20200313
  Transmission Date: 20200409
  Serious: Yes (Hospitalization)
  Sender: FDA-Public Use
  Company Number: SE-CELLTRION INC.-2020SE020089

PATIENT

DRUGS (4)
  1. REMSIMA [Suspect]
     Active Substance: INFLIXIMAB
     Indication: COLITIS ULCERATIVE
     Dosage: 500 MG EVERY 6 WEEKS
     Route: 042
     Dates: start: 20191126, end: 20191126
  2. REMSIMA [Suspect]
     Active Substance: INFLIXIMAB
     Dosage: 500 MG EVERY 6 WEEKS
     Route: 042
     Dates: start: 20200109, end: 20200109
  3. METOJECT [Concomitant]
     Active Substance: METHOTREXATE SODIUM
     Dosage: 0.3 ML, 1/WEEK
     Dates: start: 20171115, end: 20200114
  4. PREDNISOLONE. [Concomitant]
     Active Substance: PREDNISOLONE

REACTIONS (2)
  - Product substitution issue [Not Recovered/Not Resolved]
  - Meningitis listeria [Not Recovered/Not Resolved]

NARRATIVE: CASE EVENT DATE: 20200114
